FAERS Safety Report 8252322-4 (Version None)
Quarter: 2012Q2

REPORT INFORMATION
  Report Type: 
  Country: None (occurrence: None)
  Receive Date: 20120402
  Receipt Date: 20110502
  Transmission Date: 20120825
  Serious: No
  Sender: FDA-Public Use
  Company Number: US-ABBOTT-11P-163-0804527-00

PATIENT
  Age: 39 Year
  Sex: Male

DRUGS (1)
  1. TESTOSTERONE [Suspect]
     Indication: BLOOD TESTOSTERONE DECREASED
     Dosage: DAILY DOSE: 5 GRAM(S), IN THE MORNING, MISSED 1 DAY, BUT TOOK IT AT NIGHT 1 PACKET/DAY
     Route: 062
     Dates: start: 20110419

REACTIONS (2)
  - URINE FLOW DECREASED [None]
  - POLLAKIURIA [None]
